FAERS Safety Report 9288133 (Version 2)
Quarter: 2013Q3

REPORT INFORMATION
  Report Type: Spontaneous
  Country: ES (occurrence: ES)
  Receive Date: 20130514
  Receipt Date: 20130710
  Transmission Date: 20140515
  Serious: Yes (Death, Hospitalization)
  Sender: FDA-Public Use
  Company Number: ES-SANOFI-AVENTIS-2013SA048273

PATIENT
  Age: 59 Year
  Sex: Female

DRUGS (1)
  1. CHLOROQUINE PHOSPHATE [Suspect]
     Indication: CUTANEOUS LUPUS ERYTHEMATOSUS
     Route: 065

REACTIONS (14)
  - Cardiac disorder [Fatal]
  - Conduction disorder [Fatal]
  - Cardiac failure [Fatal]
  - Dyspnoea [Fatal]
  - Venous pressure jugular increased [Fatal]
  - Rales [Fatal]
  - Oedema [Fatal]
  - Cardiomegaly [Fatal]
  - Ventricular hypertrophy [Fatal]
  - Hepatomegaly [Fatal]
  - Ascites [Fatal]
  - Pulmonary oedema [Fatal]
  - Muscle atrophy [Unknown]
  - Asthenia [Unknown]
